FAERS Safety Report 24242261 (Version 1)
Quarter: 2024Q3

REPORT INFORMATION
  Report Type: Spontaneous
  Country: JP (occurrence: JP)
  Receive Date: 20240823
  Receipt Date: 20240823
  Transmission Date: 20241017
  Serious: Yes (Other)
  Sender: ACCORD
  Company Number: JP-Accord-442294

PATIENT
  Age: 66 Year
  Sex: Female

DRUGS (2)
  1. DOCETAXEL [Suspect]
     Active Substance: DOCETAXEL\DOCETAXEL ANHYDROUS
     Indication: Lung carcinoma cell type unspecified recurrent
     Dosage: ON DAY 81
  2. RAMUCIRUMAB [Concomitant]
     Active Substance: RAMUCIRUMAB
     Indication: Lung carcinoma cell type unspecified recurrent
     Dosage: ON DAY 81

REACTIONS (2)
  - Disease recurrence [Recovered/Resolved]
  - Stress cardiomyopathy [Recovered/Resolved]
